FAERS Safety Report 5324196-2 (Version None)
Quarter: 2007Q2

REPORT INFORMATION
  Report Type: 
  Country: None (occurrence: None)
  Receive Date: 20070514
  Receipt Date: 20070511
  Transmission Date: 20071010
  Serious: Yes (Hospitalization, Other)
  Sender: FDA-Public Use
  Company Number: AR-BRISTOL-MYERS SQUIBB COMPANY-13776919

PATIENT
  Age: 80 Year
  Sex: Female

DRUGS (10)
  1. ABATACEPT [Suspect]
     Indication: RHEUMATOID ARTHRITIS
     Route: 042
     Dates: start: 20040412, end: 20070412
  2. METHOTREXATE [Suspect]
     Route: 030
     Dates: start: 19990101
  3. IBUPROFEN [Concomitant]
     Dates: start: 20020101
  4. PARACETAMOL [Concomitant]
     Dates: start: 19990101
  5. RANITIDINE [Concomitant]
     Dates: start: 19960101
  6. MAGNESIUM SULFATE [Concomitant]
     Dates: start: 20030901
  7. MADOPAR [Concomitant]
     Dates: start: 20060920
  8. FERRUM [Concomitant]
     Dates: start: 20060307
  9. FOLIC ACID [Concomitant]
     Dates: start: 20070418
  10. ASPIRIN [Concomitant]
     Dates: start: 20070412

REACTIONS (5)
  - ANAEMIA [None]
  - CANDIDIASIS [None]
  - MUSCLE RIGIDITY [None]
  - MUSCULAR WEAKNESS [None]
  - THROMBOPHLEBITIS [None]
